FAERS Safety Report 6180369-0 (Version None)
Quarter: 2009Q2

REPORT INFORMATION
  Report Type: 
  Country: None (occurrence: None)
  Receive Date: 20090504
  Receipt Date: 20090504
  Transmission Date: 20091009
  Serious: Yes (Hospitalization)
  Sender: FDA-Public Use
  Company Number: None

PATIENT
  Sex: Female
  Weight: 72.3 kg

DRUGS (4)
  1. FLUDARABINE PHOSPHATE [Suspect]
  2. MELPHALAN [Suspect]
  3. ANTI-THYMOCYTE GLOBULIN NOS [Suspect]
  4. SEE ATTACHMENT [Concomitant]

REACTIONS (10)
  - ACUTE RESPIRATORY FAILURE [None]
  - ATELECTASIS [None]
  - CONTINUOUS HAEMODIAFILTRATION [None]
  - LETHARGY [None]
  - MUCOSAL INFLAMMATION [None]
  - PLEURAL EFFUSION [None]
  - RENAL FAILURE ACUTE [None]
  - RENAL TUBULAR NECROSIS [None]
  - RESPIRATORY DISTRESS [None]
  - STRIDOR [None]
